FAERS Safety Report 12676644 (Version 2)
Quarter: 2016Q3

REPORT INFORMATION
  Report Type: Spontaneous
  Country: US (occurrence: US)
  Receive Date: 20160823
  Receipt Date: 20160901
  Transmission Date: 20161109
  Serious: No
  Sender: FDA-Public Use
  Company Number: US-PFIZER INC-2016398073

PATIENT
  Sex: Female

DRUGS (3)
  1. NEURONTIN [Interacting]
     Active Substance: GABAPENTIN
     Indication: NEUROPATHY PERIPHERAL
  2. FLEXERIL [Interacting]
     Active Substance: CYCLOBENZAPRINE HYDROCHLORIDE
     Dosage: UNK
  3. NEURONTIN [Suspect]
     Active Substance: GABAPENTIN
     Indication: PAIN
     Dosage: UNK

REACTIONS (4)
  - Drug interaction [Unknown]
  - Drug ineffective for unapproved indication [Unknown]
  - Drug intolerance [Unknown]
  - Feeling abnormal [Unknown]
